FAERS Safety Report 18660885 (Version 1)
Quarter: 2020Q4

REPORT INFORMATION
  Report Type: Spontaneous
  Country: US (occurrence: US)
  Receive Date: 20201224
  Receipt Date: 20201224
  Transmission Date: 20210114
  Serious: Yes (Other)
  Sender: FDA-Public Use
  Company Number: None

PATIENT
  Age: 48 Year
  Sex: Female

DRUGS (11)
  1. BUPROPION XL [Concomitant]
     Active Substance: BUPROPION
  2. CYCLOBENZAPRINE. [Concomitant]
     Active Substance: CYCLOBENZAPRINE
  3. FISH OIL [Concomitant]
     Active Substance: FISH OIL
  4. GLUCOSAMINE [Concomitant]
     Active Substance: GLUCOSAMINE
  5. COSENTYX [Suspect]
     Active Substance: SECUKINUMAB
     Indication: MULTIPLE SCLEROSIS
     Dosage: ?          OTHER FREQUENCY:EVERY 4 WEEKS;?
     Route: 058
     Dates: start: 20200117
  6. INDOMETHACIN. [Concomitant]
     Active Substance: INDOMETHACIN
  7. SULFASALAZINE DR [Concomitant]
  8. MODAFINIL. [Concomitant]
     Active Substance: MODAFINIL
  9. PREGABALIN. [Concomitant]
     Active Substance: PREGABALIN
  10. VENLAFAXINE ER [Concomitant]
     Active Substance: VENLAFAXINE HYDROCHLORIDE
  11. VITAMIN B-12/C/D [Concomitant]

REACTIONS (5)
  - Musculoskeletal stiffness [None]
  - Foot fracture [None]
  - Fatigue [None]
  - Cough [None]
  - SARS-CoV-2 test positive [None]

NARRATIVE: CASE EVENT DATE: 20201206
